FAERS Safety Report 16018230 (Version 1)
Quarter: 2019Q1

REPORT INFORMATION
  Report Type: Spontaneous
  Country: IS (occurrence: IS)
  Receive Date: 20190228
  Receipt Date: 20190228
  Transmission Date: 20190418
  Serious: Yes (Other)
  Sender: FDA-Public Use
  Company Number: HU-ASTRAZENECA-2019SE31063

PATIENT
  Age: 64 Year
  Sex: Female

DRUGS (11)
  1. ATORIS [Concomitant]
     Active Substance: ATORVASTATIN CALCIUM
     Dosage: UNK
  2. LETROZOLE. [Concomitant]
     Active Substance: LETROZOLE
     Indication: ENDOCRINE DISORDER
  3. AMILORID [Concomitant]
     Dosage: WEEKLY 3X
  4. COVEREX AS [Concomitant]
     Active Substance: PERINDOPRIL ARGININE
     Dosage: 5 IN THE EVENING
  5. FRONTIN [Concomitant]
     Active Substance: ALPRAZOLAM
     Dosage: 0.5 DF, (HALF TABLET IN THE EVENING)
  6. EUTHYROX [Concomitant]
     Active Substance: LEVOTHYROXINE SODIUM
     Dosage: 50 UG, UNK50UG/INHAL
  7. BISOPROLOL [Concomitant]
     Active Substance: BISOPROLOL
     Dosage: 0.5 DF, (5 MG 1X1/2)
  8. ASA PROTECT [Concomitant]
     Dosage: UNK
  9. FASLODEX [Suspect]
     Active Substance: FULVESTRANT
     Indication: BREAST CANCER METASTATIC
     Dosage: 500 MG, UNK
     Route: 030
     Dates: start: 20190130
  10. COVEREX AS KOMB [Concomitant]
     Dosage: UNK, 1X/DAY
  11. IBRANCE [Suspect]
     Active Substance: PALBOCICLIB
     Indication: BREAST CANCER METASTATIC
     Dosage: 125 MG ONCE DAILY THROUGH 21 DAYS THEN 1 WEEK BREAK
     Route: 048
     Dates: start: 20181018

REACTIONS (2)
  - Syncope [Unknown]
  - Abdominal discomfort [Recovered/Resolved]
